FAERS Safety Report 11309547 (Version 3)
Quarter: 2015Q3

REPORT INFORMATION
  Report Type: Spontaneous
  Country: US (occurrence: US)
  Receive Date: 20150724
  Receipt Date: 20150827
  Transmission Date: 20151125
  Serious: Yes (Death, Hospitalization, Other)
  Sender: FDA-Public Use
  Company Number: US-JNJFOC-20150716669

PATIENT
  Age: 80 Year
  Sex: Male

DRUGS (10)
  1. IMBRUVICA [Suspect]
     Active Substance: IBRUTINIB
     Indication: CHRONIC LYMPHOCYTIC LEUKAEMIA
     Route: 048
     Dates: start: 20150803
  2. TUMS [Concomitant]
     Active Substance: CALCIUM CARBONATE
  3. RITUXAN [Concomitant]
     Active Substance: RITUXIMAB
  4. IMBRUVICA [Suspect]
     Active Substance: IBRUTINIB
     Indication: CHRONIC LYMPHOCYTIC LEUKAEMIA
     Route: 048
     Dates: start: 20150703, end: 20150709
  5. OXYCODONE [Concomitant]
     Active Substance: OXYCODONE
  6. IMBRUVICA [Suspect]
     Active Substance: IBRUTINIB
     Indication: HYPERCALCAEMIA
     Route: 048
     Dates: start: 20150703, end: 20150709
  7. LEVOTHYROXINE. [Concomitant]
     Active Substance: LEVOTHYROXINE
  8. FUROSEMIDE. [Concomitant]
     Active Substance: FUROSEMIDE
  9. ALLOPURINOL. [Concomitant]
     Active Substance: ALLOPURINOL
  10. IMBRUVICA [Suspect]
     Active Substance: IBRUTINIB
     Indication: HYPERCALCAEMIA
     Route: 048
     Dates: start: 20150803

REACTIONS (14)
  - Encephalopathy [Unknown]
  - Pancytopenia [Not Recovered/Not Resolved]
  - Anaemia [Not Recovered/Not Resolved]
  - Seizure [Unknown]
  - Death [Fatal]
  - Acute respiratory failure [Unknown]
  - Pulmonary hypertension [Unknown]
  - Hypothyroidism [Unknown]
  - Musculoskeletal pain [Unknown]
  - Hypomagnesaemia [Unknown]
  - Humerus fracture [Unknown]
  - Fall [Unknown]
  - Pneumonia aspiration [Unknown]
  - Hypocalcaemia [Not Recovered/Not Resolved]

NARRATIVE: CASE EVENT DATE: 20150709
